FAERS Safety Report 10155019 (Version 3)
Quarter: 2017Q1

REPORT INFORMATION
  Report Type: Spontaneous
  Country: US (occurrence: US)
  Receive Date: 20140506
  Receipt Date: 20170210
  Transmission Date: 20170428
  Serious: No
  Sender: FDA-Public Use
  Company Number: US-009507513-1404USA015307

PATIENT
  Age: 50 Year
  Sex: Male

DRUGS (2)
  1. JANUMET XR [Suspect]
     Active Substance: METFORMIN HYDROCHLORIDE\SITAGLIPTIN PHOSPHATE
     Indication: DIABETES MELLITUS
     Dosage: 1 TABLET TWICE DAILY
     Route: 048
     Dates: start: 201312
  2. PRINIVIL [Concomitant]
     Active Substance: LISINOPRIL

REACTIONS (7)
  - Blood glucose abnormal [Unknown]
  - Product quality issue [Unknown]
  - Vision blurred [Recovered/Resolved]
  - Medication residue present [Unknown]
  - Diarrhoea [Unknown]
  - Inappropriate schedule of drug administration [Unknown]
  - Eye swelling [Unknown]

NARRATIVE: CASE EVENT DATE: 201312
